FAERS Safety Report 5882748-5 (Version None)
Quarter: 2008Q3

REPORT INFORMATION
  Report Type: 
  Country: None (occurrence: None)
  Receive Date: 20080913
  Receipt Date: 20080813
  Transmission Date: 20090109
  Serious: No
  Sender: FDA-Public Use
  Company Number: US-ABBOTT-08P-163-0471074-00

PATIENT
  Sex: Female
  Weight: 44.946 kg

DRUGS (11)
  1. HUMIRA [Suspect]
     Indication: IRRITABLE BOWEL SYNDROME
     Route: 058
     Dates: start: 20080101, end: 20080813
  2. HUMIRA [Suspect]
     Indication: CROHN'S DISEASE
  3. BUDESONIDE [Concomitant]
     Indication: IRRITABLE BOWEL SYNDROME
     Route: 048
     Dates: start: 20070801
  4. LOMOTIL [Concomitant]
     Indication: DIARRHOEA
     Route: 048
     Dates: start: 20070701
  5. ZOLPIDEM TARTRATE [Concomitant]
     Indication: INSOMNIA
     Route: 048
  6. PREDNISONE TAB [Concomitant]
     Indication: DRUG USE FOR UNKNOWN INDICATION
     Route: 048
  7. TYLOX [Concomitant]
     Indication: CROHN'S DISEASE
     Route: 048
  8. CYANOCOBALAMIN [Concomitant]
     Indication: DRUG USE FOR UNKNOWN INDICATION
     Route: 050
  9. OMEPRAZOLE MAGNESIUM [Concomitant]
     Indication: DRUG USE FOR UNKNOWN INDICATION
     Route: 048
     Dates: start: 20060101
  10. CALCIUM-SANDOZ [Concomitant]
     Indication: DRUG USE FOR UNKNOWN INDICATION
     Route: 048
     Dates: start: 20060101
  11. FOLIC ACID [Concomitant]
     Indication: DRUG USE FOR UNKNOWN INDICATION
     Route: 048
     Dates: start: 20060101

REACTIONS (7)
  - BIOPSY COLON ABNORMAL [None]
  - CONTUSION [None]
  - GINGIVAL BLEEDING [None]
  - INJECTION SITE PAPULE [None]
  - INJECTION SITE SWELLING [None]
  - LARGE INTESTINAL ULCER [None]
  - WEIGHT DECREASED [None]
